FAERS Safety Report 9972188 (Version 1)
Quarter: 2014Q1

REPORT INFORMATION
  Report Type: Spontaneous
  Country: IT (occurrence: None)
  Receive Date: 20140304
  Receipt Date: 20140304
  Transmission Date: 20141002
  Serious: Yes (Hospitalization, Other)
  Sender: FDA-Public Use
  Company Number: FK201400671

PATIENT
  Age: 73 Year
  Sex: Male
  Weight: 73 kg

DRUGS (5)
  1. CYTARABINE (MANUFACTURER UNKNOWN) (CYTARABINE) (CYTARABINE) [Suspect]
     Indication: MANTLE CELL LYMPHOMA REFRACTORY
     Dosage: 800 MG/M2, CYCLICAL, INTRAVENOUS
     Route: 042
     Dates: start: 20130522, end: 20130726
  2. MABTHERA (RITUXIMAB) [Concomitant]
  3. LEVACT (BENDAMUSTINE HYDROCHLORIDE) [Concomitant]
  4. TALAVIR (VALACICLOVIR HYDROCHLORIDE) [Concomitant]
  5. BACTRIM (BACTRIM) [Concomitant]

REACTIONS (2)
  - Off label use [None]
  - Pneumonia [None]
